FAERS Safety Report 25271518 (Version 1)
Quarter: 2025Q2

REPORT INFORMATION
  Report Type: Spontaneous
  Country: BE (occurrence: BE)
  Receive Date: 20250506
  Receipt Date: 20250506
  Transmission Date: 20250716
  Serious: Yes (Other)
  Sender: UNICHEM
  Company Number: BE-UNICHEM LABORATORIES LIMITED-UNI-2025-BE-002111

PATIENT

DRUGS (2)
  1. AMIODARONE [Interacting]
     Active Substance: AMIODARONE
     Indication: Atrial fibrillation
     Route: 065
  2. APIXABAN [Interacting]
     Active Substance: APIXABAN
     Indication: Atrial fibrillation
     Route: 065

REACTIONS (2)
  - Lower gastrointestinal haemorrhage [Unknown]
  - Drug interaction [Unknown]
